FAERS Safety Report 21365259 (Version 1)
Quarter: 2022Q3

REPORT INFORMATION
  Report Type: Spontaneous
  Country: US (occurrence: None)
  Receive Date: 20220922
  Receipt Date: 20220922
  Transmission Date: 20221026
  Serious: No
  Sender: FDA-Public Use
  Company Number: None

PATIENT
  Age: 45 Year
  Sex: 0

DRUGS (2)
  1. PHEXXI VAGINAL GEL [Suspect]
     Active Substance: CITRIC ACID MONOHYDRATE\LACTIC ACID, L-\POTASSIUM BITARTRATE
     Dates: start: 20220901
  2. Phexxi 1.8-1-0.4% Vaginal Gel RQ: 60 [Concomitant]

REACTIONS (2)
  - Adverse drug reaction [None]
  - Product use issue [None]
